FAERS Safety Report 10670890 (Version 2)
Quarter: 2015Q1

REPORT INFORMATION
  Report Type: Spontaneous
  Country: US (occurrence: None)
  Receive Date: 20141219
  Receipt Date: 20150106
  Transmission Date: 20150720
  Serious: Yes (Other)
  Sender: FDA-Public Use
  Company Number: 2014-US-016516

PATIENT
  Age: 75 Year
  Sex: Male
  Weight: 102 kg

DRUGS (2)
  1. XYREM [Suspect]
     Active Substance: SODIUM OXYBATE
     Indication: CATAPLEXY
     Route: 048
     Dates: start: 201108, end: 2011
  2. XYREM [Suspect]
     Active Substance: SODIUM OXYBATE
     Indication: NARCOLEPSY
     Route: 048
     Dates: start: 201108, end: 2011

REACTIONS (3)
  - Tooth abscess [None]
  - Procedural pain [None]
  - Tooth extraction [None]

NARRATIVE: CASE EVENT DATE: 20141211
